FAERS Safety Report 6496749-X (Version None)
Quarter: 2009Q4

REPORT INFORMATION
  Report Type: 
  Country: None (occurrence: None)
  Receive Date: 20091211
  Receipt Date: 20091201
  Transmission Date: 20100525
  Serious: Yes (Death, Hospitalization)
  Sender: FDA-Public Use
  Company Number: 083

PATIENT
  Age: 47 Year
  Sex: Male

DRUGS (6)
  1. FAZACLO ODT [Suspect]
     Indication: SCHIZOPHRENIA
     Dosage: 75 MG PO DAILY
     Route: 048
     Dates: start: 20060403, end: 20061106
  2. FOLIC ACID [Concomitant]
  3. ASPIRIN [Concomitant]
  4. ZONEGRAN [Concomitant]
  5. TRILEPTAL [Concomitant]
  6. COGENTIN [Concomitant]

REACTIONS (1)
  - PNEUMONIA [None]
